FAERS Safety Report 10188577 (Version 1)
Quarter: 2014Q2

REPORT INFORMATION
  Report Type: Spontaneous
  Country: US (occurrence: US)
  Receive Date: 20140522
  Receipt Date: 20140522
  Transmission Date: 20141212
  Serious: No
  Sender: FDA-Public Use
  Company Number: US-SA-2014SA015208

PATIENT
  Age: 71 Year
  Sex: Female

DRUGS (8)
  1. SOLOSTAR [Suspect]
     Indication: TYPE 2 DIABETES MELLITUS
     Dosage: PRODUCT STARTED THREE YEARS AGO.
  2. SOLOSTAR [Suspect]
     Indication: TYPE 2 DIABETES MELLITUS
     Dosage: PRODUCT STARTED THREE YEARS AGO.
  3. SOLOSTAR [Suspect]
     Indication: TYPE 2 DIABETES MELLITUS
  4. SOLOSTAR [Suspect]
     Indication: TYPE 2 DIABETES MELLITUS
  5. LANTUS SOLOSTAR [Suspect]
     Indication: TYPE 2 DIABETES MELLITUS
     Dosage: PRODUCT STARTED THREE YEARS AGO. DOSE:50 UNIT(S)
     Route: 058
  6. LANTUS SOLOSTAR [Suspect]
     Indication: TYPE 2 DIABETES MELLITUS
     Dosage: PRODUCT STARTED THREE YEARS AGO. DOSE:50 UNIT(S)
     Route: 058
  7. LANTUS SOLOSTAR [Suspect]
     Indication: TYPE 2 DIABETES MELLITUS
     Dosage: 40 UNITS AM AND 40 UNITS PM DOSE:40 UNIT(S)
     Route: 058
  8. LANTUS SOLOSTAR [Suspect]
     Indication: TYPE 2 DIABETES MELLITUS
     Dosage: 40 UNITS AM AND 40 UNITS PM DOSE:40 UNIT(S)
     Route: 058

REACTIONS (3)
  - Injection site pain [Unknown]
  - Injection site induration [Unknown]
  - Inappropriate schedule of drug administration [Unknown]
